FAERS Safety Report 4800098-2 (Version None)
Quarter: 2005Q4

REPORT INFORMATION
  Report Type: 
  Country: None (occurrence: None)
  Receive Date: 20051012
  Receipt Date: 20051012
  Transmission Date: 20060501
  Serious: Yes (Hospitalization)
  Sender: FDA-Public Use
  Company Number: None

PATIENT
  Sex: Female

DRUGS (1)
  1. AMOXICILLIN [Suspect]
     Indication: OTITIS MEDIA
     Dosage: PO
     Route: 048
     Dates: start: 20050218

REACTIONS (2)
  - PRURITUS [None]
  - RASH [None]
